FAERS Safety Report 14775513 (Version 1)
Quarter: 2018Q2

REPORT INFORMATION
  Report Type: Spontaneous
  Country: GB (occurrence: GB)
  Receive Date: 20180418
  Receipt Date: 20180418
  Transmission Date: 20180711
  Serious: Yes (Life-Threatening, Disabling)
  Sender: FDA-Public Use
  Company Number: GB-PFIZER INC-2018155790

PATIENT
  Age: 71 Year
  Sex: Female
  Weight: 58 kg

DRUGS (7)
  1. RAMIPRIL. [Concomitant]
     Active Substance: RAMIPRIL
     Dosage: 2 DF, 1X/DAY
     Dates: start: 20180223
  2. OMEPRAZOLE. [Concomitant]
     Active Substance: OMEPRAZOLE
     Dosage: 1 DF, 1X/DAY
     Dates: start: 20180223
  3. BISOPROLOL [Concomitant]
     Active Substance: BISOPROLOL
     Dosage: 2 DF, 1X/DAY
     Dates: start: 20180223
  4. LORATADINE. [Concomitant]
     Active Substance: LORATADINE
     Dosage: 1 DF, 1X/DAY
     Dates: start: 20180305
  5. ACETYLSALICYLIC ACID [Concomitant]
     Active Substance: ASPIRIN
     Dosage: 1 DF, 1X/DAY
     Dates: start: 20180223
  6. ATORVASTATIN [Suspect]
     Active Substance: ATORVASTATIN
     Dosage: 80 MG, UNK
     Dates: start: 20180223
  7. TICAGRELOR. [Concomitant]
     Active Substance: TICAGRELOR
     Dosage: 2 DF, 1X/DAY FOR 1 YEAR
     Dates: start: 20180223

REACTIONS (4)
  - Chapped lips [Unknown]
  - Lip swelling [Unknown]
  - Rash generalised [Unknown]
  - Drug hypersensitivity [Recovering/Resolving]

NARRATIVE: CASE EVENT DATE: 20180302
